FAERS Safety Report 7563061-7 (Version None)
Quarter: 2011Q2

REPORT INFORMATION
  Report Type: 
  Country: None (occurrence: None)
  Receive Date: 20110622
  Receipt Date: 20110606
  Transmission Date: 20111010
  Serious: No
  Sender: FDA-Public Use
  Company Number: US-B.I. PHARMACEUTICALS,INC./RIDGEFIELD-2011-BP-14706BP

PATIENT
  Age: 83 Year
  Sex: Female

DRUGS (8)
  1. SYNTHROID [Concomitant]
     Indication: HYPOTHYROIDISM
  2. PRADAXA [Suspect]
     Indication: ATRIAL FIBRILLATION
     Dosage: 300 MG
     Route: 048
     Dates: start: 20110605
  3. HYDROCODONE [Concomitant]
     Indication: BACK PAIN
  4. CRESTOR [Concomitant]
     Indication: BLOOD CHOLESTEROL INCREASED
  5. EVISTA [Concomitant]
     Indication: PROPHYLAXIS
  6. IMDUR [Concomitant]
     Indication: ATRIAL FIBRILLATION
  7. ASPIRIN [Concomitant]
     Indication: ATRIAL FIBRILLATION
     Dosage: 162 MG
  8. MULTI-VITAMINS [Concomitant]
     Indication: ATRIAL FIBRILLATION

REACTIONS (2)
  - DIARRHOEA [None]
  - FLATULENCE [None]
